FAERS Safety Report 15498818 (Version 1)
Quarter: 2018Q4

REPORT INFORMATION
  Report Type: Spontaneous
  Country: US (occurrence: US)
  Receive Date: 20181005
  Receipt Date: 20181005
  Transmission Date: 20190205
  Serious: No
  Sender: FDA-Public Use
  Company Number: None

PATIENT
  Sex: Female

DRUGS (2)
  1. TYKERB [Suspect]
     Active Substance: LAPATINIB DITOSYLATE
     Indication: AGRANULOCYTOSIS
     Route: 048
     Dates: start: 20180915
  2. CAPECITABINE. [Concomitant]
     Active Substance: CAPECITABINE

REACTIONS (1)
  - Lymphoedema [None]

NARRATIVE: CASE EVENT DATE: 20180721
